FAERS Safety Report 21165389 (Version 1)
Quarter: 2022Q3

REPORT INFORMATION
  Report Type: Other
  Country: US (occurrence: None)
  Receive Date: 20220803
  Receipt Date: 20220803
  Transmission Date: 20221027
  Serious: Yes (Hospitalization)
  Sender: FDA-Public Use
  Company Number: US-ROCHE-3151638

PATIENT
  Sex: Female

DRUGS (1)
  1. XELODA [Suspect]
     Active Substance: CAPECITABINE
     Indication: Colon cancer
     Dosage: TAKE 3 TABLET(S) BY MOUTH TWICE A DAY FOR 2 WEEK(S) ON, 1 WEEK(S) OFF (TAKE WITH WATER AND WITHIN 30
     Route: 048

REACTIONS (2)
  - Hip fracture [Unknown]
  - Eye haemorrhage [Unknown]
